FAERS Safety Report 18039961 (Version 1)
Quarter: 2020Q3

REPORT INFORMATION
  Report Type: Spontaneous
  Country: US (occurrence: US)
  Receive Date: 20200717
  Receipt Date: 20200717
  Transmission Date: 20201103
  Serious: Yes (Death, Hospitalization, Other)
  Sender: FDA-Public Use
  Company Number: US-PURDUE-USA-2020-0152803

PATIENT
  Sex: Female
  Weight: 42.18 kg

DRUGS (4)
  1. OXYCONTIN [Suspect]
     Active Substance: OXYCODONE HYDROCHLORIDE
     Dosage: 100 MG, UNK
     Route: 048
     Dates: start: 2001
  2. OXYCODONE HYDROCHLORIDE (SIMILAR TO NDA 22?272) [Suspect]
     Active Substance: OXYCODONE HYDROCHLORIDE
     Indication: PAIN
     Dosage: 1 TABLET OF 100 MG, BID
     Route: 048
     Dates: start: 1999, end: 2016
  3. MORPHINE SULFATE (SIMILAR TO NDA 19?516) [Suspect]
     Active Substance: MORPHINE SULFATE
     Indication: PAIN
     Dosage: UNK
     Route: 048
     Dates: start: 2013, end: 2014
  4. OXYCONTIN [Suspect]
     Active Substance: OXYCODONE HYDROCHLORIDE
     Indication: PAIN
     Dosage: 1 TABLET OF 80 MG, BID
     Route: 048
     Dates: start: 1996, end: 2006

REACTIONS (13)
  - Behaviour disorder [Recovered/Resolved]
  - Sepsis [Unknown]
  - Intestinal obstruction [Unknown]
  - Surgery [Unknown]
  - Aggression [Unknown]
  - Drug dependence [Fatal]
  - Colon cancer [Fatal]
  - Ulcer haemorrhage [Unknown]
  - Weight decreased [Unknown]
  - Diarrhoea [Unknown]
  - Pancreatic carcinoma [Fatal]
  - Agitation [Recovered/Resolved]
  - Gastric cancer [Fatal]

NARRATIVE: CASE EVENT DATE: 2014
